FAERS Safety Report 10672195 (Version 3)
Quarter: 2016Q2

REPORT INFORMATION
  Report Type: Report from Study
  Country: US (occurrence: US)
  Receive Date: 20141223
  Receipt Date: 20160524
  Transmission Date: 20160815
  Serious: Yes (Hospitalization)
  Sender: FDA-Public Use
  Company Number: US-SA-2014SA174101

PATIENT
  Age: 45 Year
  Sex: Male
  Weight: 118 kg

DRUGS (8)
  1. ASPIRIN. [Concomitant]
     Active Substance: ASPIRIN
  2. CARVEDILOL. [Concomitant]
     Active Substance: CARVEDILOL
  3. SOLOSTAR [Concomitant]
     Active Substance: DEVICE
     Dates: end: 201412
  4. GLIMEPIRIDE. [Concomitant]
     Active Substance: GLIMEPIRIDE
  5. METFORMIN [Concomitant]
     Active Substance: METFORMIN HYDROCHLORIDE
  6. APIDRA SOLOSTAR [Suspect]
     Active Substance: INSULIN GLULISINE
     Indication: DIABETES MELLITUS
     Dosage: DOSE: SLIDING SCALE
     Route: 065
     Dates: end: 201412
  7. LANTUS SOLOSTAR [Suspect]
     Active Substance: INSULIN GLARGINE
     Indication: DIABETES MELLITUS
     Dosage: DOSE:40 UNIT(S)
     Route: 065
     Dates: start: 20140911, end: 201412
  8. SOLOSTAR [Concomitant]
     Active Substance: DEVICE
     Dates: start: 20140911, end: 201412

REACTIONS (1)
  - Cardiac disorder [Unknown]

NARRATIVE: CASE EVENT DATE: 2014
